FAERS Safety Report 7941891-7 (Version None)
Quarter: 2011Q4

REPORT INFORMATION
  Report Type: 
  Country: None (occurrence: None)
  Receive Date: 20111108
  Receipt Date: 20110324
  Transmission Date: 20120403
  Serious: Yes (Other)
  Sender: FDA-Public Use
  Company Number: PHEH2011US00460

PATIENT
  Sex: Male

DRUGS (1)
  1. ZOMETA [Suspect]
     Dosage: INJECTION NOS

REACTIONS (6)
  - DISABILITY [None]
  - PAIN [None]
  - OSTEONECROSIS OF JAW [None]
  - ANHEDONIA [None]
  - INJURY [None]
  - STRESS [None]
